FAERS Safety Report 16728931 (Version 1)
Quarter: 2019Q3

REPORT INFORMATION
  Report Type: Spontaneous
  Country: BR (occurrence: BR)
  Receive Date: 20190822
  Receipt Date: 20190822
  Transmission Date: 20191005
  Serious: Yes (Other)
  Sender: FDA-Public Use
  Company Number: BR-SA-2019SA003974

PATIENT
  Age: 38 Year
  Sex: Female
  Weight: 64 kg

DRUGS (3)
  1. EVOCANIL [Concomitant]
     Indication: SCINTILLATING SCOTOMA
     Dosage: 2 CAPSULES PER DAY
     Route: 048
     Dates: start: 201811
  2. CLEXANE [Suspect]
     Active Substance: ENOXAPARIN SODIUM
     Indication: HYPERCOAGULATION
     Dosage: 1 SYRINGE PER DAY
     Route: 058
     Dates: start: 201812
  3. GRAVIPUR [Concomitant]
     Indication: NEURAL TUBE DEFECT
     Dosage: 2 TABLETS PER DAY
     Route: 048
     Dates: start: 201811

REACTIONS (5)
  - Caesarean section [Unknown]
  - Exposure during pregnancy [Unknown]
  - Haematoma [Not Recovered/Not Resolved]
  - Haemorrhage [Unknown]
  - Product use issue [Unknown]

NARRATIVE: CASE EVENT DATE: 201812
